FAERS Safety Report 10995275 (Version 3)
Quarter: 2015Q3

REPORT INFORMATION
  Report Type: Report from Study
  Country: US (occurrence: US)
  Receive Date: 20150407
  Receipt Date: 20150824
  Transmission Date: 20151125
  Serious: Yes (Hospitalization)
  Sender: FDA-Public Use
  Company Number: US-TEVA-552185USA

PATIENT
  Age: 50 Year
  Sex: Female
  Weight: 70.6 kg

DRUGS (27)
  1. CYCLOBENZAPRINE [Concomitant]
     Active Substance: CYCLOBENZAPRINE
     Indication: MUSCLE SPASMS
     Route: 048
     Dates: start: 20141203
  2. DOCUSATE SODIUM. [Concomitant]
     Active Substance: DOCUSATE SODIUM
     Indication: CONSTIPATION
     Dosage: 400 MILLIGRAM DAILY;
     Route: 048
     Dates: start: 20141210
  3. LIDOCAINE. [Concomitant]
     Active Substance: LIDOCAINE
     Indication: PROCTALGIA
     Route: 061
     Dates: start: 20141201
  4. CARBOPLATIN. [Suspect]
     Active Substance: CARBOPLATIN
     Indication: TRIPLE NEGATIVE BREAST CANCER
     Dosage: 6 AUC
     Route: 042
     Dates: start: 20141104, end: 20141104
  5. ABT-888 (VELIPARIB) [BLINDED] [Suspect]
     Active Substance: VELIPARIB
     Indication: TRIPLE NEGATIVE BREAST CANCER
     Route: 048
     Dates: start: 20141104, end: 20150225
  6. PANTOPRAZOLE SODIUM. [Concomitant]
     Active Substance: PANTOPRAZOLE SODIUM
     Indication: GASTROOESOPHAGEAL REFLUX DISEASE
     Dosage: 40 MILLIGRAM DAILY;
     Route: 048
     Dates: start: 2002
  7. TYLENOL [Concomitant]
     Active Substance: ACETAMINOPHEN
     Indication: MYALGIA
     Route: 048
     Dates: start: 20141203
  8. CVS MUCUS EXTENDED RELEASE [Concomitant]
     Route: 048
     Dates: start: 20150207, end: 20150207
  9. CARBOPLATIN. [Suspect]
     Active Substance: CARBOPLATIN
     Dosage: 5 AUC
     Route: 042
     Dates: start: 20141203, end: 20150129
  10. MUCINEX [Concomitant]
     Active Substance: GUAIFENESIN
     Indication: ACUTE SINUSITIS
     Route: 048
     Dates: start: 20150308
  11. OXYCODONE [Concomitant]
     Active Substance: OXYCODONE
     Indication: ARTHRALGIA
     Dosage: 1-2 TABLETS 5-325 MG
     Route: 048
     Dates: start: 20150112
  12. KLOR-CON M10 [Concomitant]
     Active Substance: POTASSIUM CHLORIDE
     Indication: HYPOKALAEMIA
     Dosage: 20 MILLIEQUIVALENTS DAILY;
     Dates: start: 20150202, end: 20150207
  13. DOXORUBICIN [Suspect]
     Active Substance: DOXORUBICIN
     Indication: TRIPLE NEGATIVE BREAST CANCER
     Route: 042
     Dates: start: 20150226
  14. CYCLOPHOSPHAMIDE. [Suspect]
     Active Substance: CYCLOPHOSPHAMIDE
     Indication: TRIPLE NEGATIVE BREAST CANCER
     Route: 042
     Dates: start: 20150226
  15. HYDROCORTISONE RECTAL SUPPOSITORY [Concomitant]
     Indication: PROCTALGIA
     Dosage: ONCE
     Route: 054
     Dates: start: 20141201
  16. ONDANSETRON [Concomitant]
     Active Substance: ONDANSETRON
     Indication: NAUSEA
     Route: 048
     Dates: start: 20141106
  17. TYLENOL [Concomitant]
     Active Substance: ACETAMINOPHEN
     Indication: BACK PAIN
  18. CLARITIN [Concomitant]
     Active Substance: LORATADINE
     Indication: MYALGIA
     Route: 048
  19. DIAZEPAM. [Concomitant]
     Active Substance: DIAZEPAM
     Indication: INSOMNIA
     Route: 048
     Dates: start: 201411
  20. MIRALAX POWDER [Concomitant]
     Indication: CONSTIPATION
     Route: 048
     Dates: start: 20141217
  21. NYSTATIN. [Concomitant]
     Active Substance: NYSTATIN
     Indication: CANDIDA INFECTION
     Dosage: 1 TEASPOON
     Route: 048
     Dates: start: 20150304
  22. OXYCODONE [Concomitant]
     Active Substance: OXYCODONE
     Indication: BACK PAIN
  23. ROBITUSSIN DM [Concomitant]
     Active Substance: DEXTROMETHORPHAN HYDROBROMIDE\GUAIFENESIN
     Indication: UPPER RESPIRATORY TRACT INFECTION
     Dosage: 1 TABLESPOON
     Route: 048
     Dates: start: 20150226
  24. PACLITAXEL. [Suspect]
     Active Substance: PACLITAXEL
     Indication: TRIPLE NEGATIVE BREAST CANCER
     Route: 042
     Dates: start: 20141104, end: 20150219
  25. AMBIEN [Concomitant]
     Active Substance: ZOLPIDEM TARTRATE
     Indication: INSOMNIA
     Route: 048
  26. CVS NATURAL FIBER LAXATIVE POWDER [Concomitant]
     Indication: CONSTIPATION
     Route: 048
     Dates: start: 20141203
  27. PILOCARPINE. [Concomitant]
     Active Substance: PILOCARPINE
     Indication: DRY MOUTH
     Dosage: 15 MILLIGRAM DAILY;
     Route: 048
     Dates: start: 2008

REACTIONS (1)
  - Febrile neutropenia [Recovered/Resolved]

NARRATIVE: CASE EVENT DATE: 20150306
